FAERS Safety Report 13046487 (Version 1)
Quarter: 2016Q4

REPORT INFORMATION
  Report Type: Spontaneous
  Country: US (occurrence: US)
  Receive Date: 20161220
  Receipt Date: 20161220
  Transmission Date: 20170207
  Serious: No
  Sender: FDA-Public Use
  Company Number: US-PFIZER INC-2016587396

PATIENT
  Sex: Female

DRUGS (1)
  1. XELJANZ [Suspect]
     Active Substance: TOFACITINIB CITRATE
     Dosage: UNK

REACTIONS (12)
  - Tremor [Unknown]
  - Back pain [Unknown]
  - Musculoskeletal stiffness [Unknown]
  - Fatigue [Unknown]
  - Anxiety [Unknown]
  - Pain in extremity [Unknown]
  - Myalgia [Unknown]
  - Arthralgia [Unknown]
  - Joint range of motion decreased [Unknown]
  - Malaise [Unknown]
  - Nausea [Unknown]
  - Dizziness [Unknown]
